FAERS Safety Report 8920387 (Version 1)
Quarter: 2012Q4

REPORT INFORMATION
  Report Type: 
  Country: HU (occurrence: HU)
  Receive Date: 20121122
  Receipt Date: 20121122
  Transmission Date: 20130627
  Serious: Yes (Hospitalization)
  Sender: FDA-Public Use
  Company Number: HU-JNJFOC-20121108383

PATIENT
  Age: 62 Year
  Sex: Male

DRUGS (11)
  1. RISPERIDONE [Suspect]
     Indication: PRODUCT USED FOR UNKNOWN INDICATION
     Route: 065
  2. RISPERIDONE [Suspect]
     Indication: PRODUCT USED FOR UNKNOWN INDICATION
     Route: 030
  3. CLOZAPINE [Suspect]
     Indication: PRODUCT USED FOR UNKNOWN INDICATION
     Route: 065
  4. OLANZAPINE [Suspect]
     Indication: PRODUCT USED FOR UNKNOWN INDICATION
     Route: 065
  5. CLONAZEPAM [Suspect]
     Indication: PRODUCT USED FOR UNKNOWN INDICATION
     Route: 065
  6. FUROSEMIDE [Concomitant]
     Dosage: alternate days
     Route: 065
  7. POTASSIUM CHLORIDE [Concomitant]
     Dosage: alternate days
     Route: 065
  8. THEOPHYLLINE [Concomitant]
     Route: 065
  9. SALBUTAMOL [Concomitant]
     Indication: DYSPNOEA
     Route: 065
  10. AMOXICILLIN/CLAVULANIC ACID [Concomitant]
     Route: 065
  11. VINPOCETINE [Concomitant]
     Route: 065

REACTIONS (1)
  - Ileus paralytic [Recovered/Resolved]
